FAERS Safety Report 8353709-1 (Version None)
Quarter: 2012Q2

REPORT INFORMATION
  Report Type: 
  Country: None (occurrence: None)
  Receive Date: 20120511
  Receipt Date: 20110909
  Transmission Date: 20120825
  Serious: No
  Sender: FDA-Public Use
  Company Number: US-GLAXOSMITHKLINE-A0944090A

PATIENT
  Sex: Female

DRUGS (14)
  1. TYKERB [Suspect]
     Indication: PRODUCT USED FOR UNKNOWN INDICATION
     Dosage: 250MG FIVE TIMES PER DAY
     Route: 048
  2. VITAMIN D [Concomitant]
  3. DETROL [Concomitant]
  4. LOSARTAN POTASSIUM [Concomitant]
  5. LIPITOR [Concomitant]
  6. CALCIUM + D [Concomitant]
  7. AGGRENOX [Concomitant]
  8. NEXIUM [Concomitant]
  9. DEXAMETHASONE [Concomitant]
  10. TYLENOL PM EXTRA STRENGTH [Concomitant]
  11. TYLENOL (CAPLET) [Concomitant]
  12. EXEMESTANE [Concomitant]
  13. PROCHLORPERAZINE [Concomitant]
  14. FELODIPINE [Concomitant]

REACTIONS (3)
  - HEART RATE INCREASED [None]
  - DYSPNOEA [None]
  - GAIT DISTURBANCE [None]
